FAERS Safety Report 21532755 (Version 10)
Quarter: 2024Q3

REPORT INFORMATION
  Report Type: Spontaneous
  Country: CA (occurrence: CA)
  Receive Date: 20221101
  Receipt Date: 20240904
  Transmission Date: 20241017
  Serious: Yes (Hospitalization, Other)
  Sender: TERSERA THERAPEUTICS
  Company Number: CA-AstraZeneca-2021A051746

PATIENT

DRUGS (48)
  1. GOSERELIN [Suspect]
     Active Substance: GOSERELIN
     Indication: Prostate cancer metastatic
     Dosage: UNKNOWN DOSE AND FREQUENCY
     Route: 058
  2. GOSERELIN [Suspect]
     Active Substance: GOSERELIN
     Indication: Bone cancer
     Dosage: UNKNOWN DOSE AND FREQUENCY
     Route: 058
  3. GOSERELIN [Suspect]
     Active Substance: GOSERELIN
     Dosage: UNKNOWN DOSE AND FREQUENCY
     Route: 058
  4. GOSERELIN [Suspect]
     Active Substance: GOSERELIN
     Dosage: UNKNOWN DOSE AND FREQUENCY
     Route: 058
  5. GOSERELIN [Suspect]
     Active Substance: GOSERELIN
     Dosage: UNKNOWN DOSE AND FREQUENCY
     Route: 058
  6. GOSERELIN [Suspect]
     Active Substance: GOSERELIN
     Dosage: UNKNOWN DOSE AND FREQUENCY
     Route: 058
  7. GOSERELIN [Suspect]
     Active Substance: GOSERELIN
     Dosage: UNKNOWN DOSE AND FREQUENCY
     Route: 058
  8. GOSERELIN [Suspect]
     Active Substance: GOSERELIN
     Dosage: UNKNOWN DOSE AND FREQUENCY
     Route: 058
  9. ZOLADEX [Suspect]
     Active Substance: GOSERELIN ACETATE
     Indication: Prostate cancer metastatic
     Dosage: UNK
     Route: 065
  10. ZOLADEX [Suspect]
     Active Substance: GOSERELIN ACETATE
     Indication: Bone cancer
  11. CASODEX [Suspect]
     Active Substance: BICALUTAMIDE
     Indication: Prostate cancer metastatic
     Dosage: UNKNOWN DOSE AND FREQUENCY
     Route: 048
  12. CASODEX [Suspect]
     Active Substance: BICALUTAMIDE
     Indication: Bone cancer
     Dosage: UNKNOWN DOSE AND FREQUENCY
     Route: 048
  13. CASODEX [Suspect]
     Active Substance: BICALUTAMIDE
     Dosage: UNKNOWN DOSE AND FREQUENCY
     Route: 048
  14. CASODEX [Suspect]
     Active Substance: BICALUTAMIDE
     Dosage: UNKNOWN DOSE AND FREQUENCY
     Route: 048
  15. CASODEX [Suspect]
     Active Substance: BICALUTAMIDE
     Dosage: UNKNOWN DOSE AND FREQUENCY
     Route: 048
  16. CASODEX [Suspect]
     Active Substance: BICALUTAMIDE
     Dosage: UNKNOWN DOSE AND FREQUENCY
     Route: 048
  17. CASODEX [Suspect]
     Active Substance: BICALUTAMIDE
     Dosage: UNKNOWN DOSE AND FREQUENCY
     Route: 048
  18. CASODEX [Suspect]
     Active Substance: BICALUTAMIDE
     Dosage: UNKNOWN DOSE AND FREQUENCY
     Route: 048
  19. CASODEX [Suspect]
     Active Substance: BICALUTAMIDE
     Dosage: UNKNOWN DOSE AND FREQUENCY
     Route: 048
  20. CASODEX [Suspect]
     Active Substance: BICALUTAMIDE
     Dosage: UNKNOWN DOSE AND FREQUENCY
     Route: 048
  21. CASODEX [Suspect]
     Active Substance: BICALUTAMIDE
     Dosage: UNKNOWN DOSE AND FREQUENCY
     Route: 048
  22. CASODEX [Suspect]
     Active Substance: BICALUTAMIDE
     Dosage: UNKNOWN DOSE AND FREQUENCY
     Route: 048
  23. CASODEX [Suspect]
     Active Substance: BICALUTAMIDE
     Dosage: UNKNOWN DOSE AND FREQUENCY
     Route: 048
  24. CASODEX [Suspect]
     Active Substance: BICALUTAMIDE
     Dosage: UNKNOWN DOSE AND FREQUENCY
     Route: 048
  25. CASODEX [Suspect]
     Active Substance: BICALUTAMIDE
     Dosage: UNKNOWN DOSE AND FREQUENCY
     Route: 048
  26. ENTYVIO [Suspect]
     Active Substance: VEDOLIZUMAB
     Indication: Crohn^s disease
     Dosage: 300.0MG UNKNOWN300.0MG UNKNOWN
     Route: 042
     Dates: start: 20200206
  27. ENTYVIO [Suspect]
     Active Substance: VEDOLIZUMAB
     Dosage: 300 MILLIGRAM
     Route: 042
  28. ENTYVIO [Suspect]
     Active Substance: VEDOLIZUMAB
     Dosage: 300 MILLIGRAM
     Route: 042
  29. ENTYVIO [Suspect]
     Active Substance: VEDOLIZUMAB
     Dosage: 300 MILLIGRAM
     Route: 042
  30. ENTYVIO [Suspect]
     Active Substance: VEDOLIZUMAB
     Dosage: 300 MILLIGRAM
     Route: 042
  31. ENTYVIO [Suspect]
     Active Substance: VEDOLIZUMAB
     Dosage: 300 MILLIGRAM
     Route: 042
  32. ENTYVIO [Suspect]
     Active Substance: VEDOLIZUMAB
     Dosage: 300 MILLIGRAM
     Route: 042
  33. ENTYVIO [Suspect]
     Active Substance: VEDOLIZUMAB
     Dosage: 300 MILLIGRAM
     Route: 042
  34. ENTYVIO [Suspect]
     Active Substance: VEDOLIZUMAB
     Dosage: 300 MILLIGRAM
     Route: 042
  35. ENTYVIO [Suspect]
     Active Substance: VEDOLIZUMAB
     Dosage: 300 MILLIGRAM
     Route: 042
  36. ASPIRIN [Concomitant]
     Active Substance: ASPIRIN
     Indication: Product used for unknown indication
     Dosage: 81 MG
     Route: 048
  37. CALCIUM [Concomitant]
     Active Substance: CALCIUM
     Indication: Product used for unknown indication
     Dosage: UNK
     Route: 048
  38. PINAVERIUM BROMIDE [Concomitant]
     Active Substance: PINAVERIUM BROMIDE
     Indication: Product used for unknown indication
     Dosage: 100 MG
     Route: 048
  39. EDOXABAN [Concomitant]
     Active Substance: EDOXABAN
     Indication: Product used for unknown indication
     Dosage: 60 MG
     Route: 065
  40. FINASTERIDE [Concomitant]
     Active Substance: FINASTERIDE
     Indication: Product used for unknown indication
     Dosage: 5 MG
     Route: 048
  41. JARDIANCE [Concomitant]
     Active Substance: EMPAGLIFLOZIN
     Indication: Product used for unknown indication
     Dosage: 10 MG
     Route: 065
  42. METFORMINUM [METFORMIN HYDROCHLORIDE] [Concomitant]
     Indication: Product used for unknown indication
     Dosage: 500 MG
     Route: 048
  43. PANTOPRAZOLE SODIUM [Concomitant]
     Active Substance: PANTOPRAZOLE SODIUM
     Indication: Product used for unknown indication
     Dosage: 40 MG
     Route: 048
  44. SENOKOT [Concomitant]
     Active Substance: SENNOSIDES
     Indication: Product used for unknown indication
     Dosage: UNK
     Route: 048
  45. TADALAFIL [Concomitant]
     Active Substance: TADALAFIL
     Indication: Product used for unknown indication
     Dosage: 5 MG
     Route: 048
  46. VALSARTAN [Concomitant]
     Active Substance: VALSARTAN
     Indication: Product used for unknown indication
     Dosage: 160 MG
     Route: 048
  47. VITAMIN D NOS [Concomitant]
     Active Substance: CHOLECALCIFEROL\ERGOCALCIFEROL
     Indication: Product used for unknown indication
     Dosage: UNK
     Route: 048
  48. VITAMIN K [Concomitant]
     Active Substance: PHYTONADIONE
     Indication: Product used for unknown indication
     Dosage: UNK
     Route: 048

REACTIONS (16)
  - Abnormal faeces [Not Recovered/Not Resolved]
  - Intestinal mass [Not Recovered/Not Resolved]
  - Small intestinal obstruction [Not Recovered/Not Resolved]
  - Faeces hard [Not Recovered/Not Resolved]
  - Cardiac disorder [Not Recovered/Not Resolved]
  - Metastases to bone [Not Recovered/Not Resolved]
  - Prostate cancer metastatic [Not Recovered/Not Resolved]
  - Malaise [Not Recovered/Not Resolved]
  - Nausea [Not Recovered/Not Resolved]
  - Diarrhoea [Not Recovered/Not Resolved]
  - Abdominal pain lower [Not Recovered/Not Resolved]
  - Constipation [Not Recovered/Not Resolved]
  - Pain [Not Recovered/Not Resolved]
  - Eczema [Not Recovered/Not Resolved]
  - Flatulence [Not Recovered/Not Resolved]
  - Faeces soft [Not Recovered/Not Resolved]
